FAERS Safety Report 4682063-1 (Version None)
Quarter: 2005Q2

REPORT INFORMATION
  Report Type: 
  Country: None (occurrence: None)
  Receive Date: 20050602
  Receipt Date: 20040615
  Transmission Date: 20051028
  Serious: Yes (Other)
  Sender: FDA-Public Use
  Company Number: 2004US000335

PATIENT
  Age: 61 Year
  Sex: Male

DRUGS (2)
  1. PROGRAF [Suspect]
     Indication: LUNG TRANSPLANT
  2. CELLCEPT [Concomitant]

REACTIONS (2)
  - LUNG TRANSPLANT REJECTION [None]
  - RESPIRATORY DISORDER [None]
